FAERS Safety Report 20931520 (Version 1)
Quarter: 2022Q2

REPORT INFORMATION
  Report Type: Other
  Country: IN (occurrence: IN)
  Receive Date: 20220608
  Receipt Date: 20220608
  Transmission Date: 20220721
  Serious: Yes (Other)
  Sender: FDA-Public Use
  Company Number: IN-BoehringerIngelheim-2022-BI-173460

PATIENT

DRUGS (1)
  1. ALTEPLASE [Suspect]
     Active Substance: ALTEPLASE
     Indication: Malignant pleural effusion
     Dosage: ROA: INTRAPLEURAL?DOSE: 2.5-10 MG/ DOSE
     Route: 034

REACTIONS (2)
  - Haemothorax [Unknown]
  - Off label use [Unknown]
